FAERS Safety Report 10159669 (Version 2)
Quarter: 2014Q2

REPORT INFORMATION
  Report Type: Report from Study
  Country: ZA (occurrence: ZA)
  Receive Date: 20140508
  Receipt Date: 20140508
  Transmission Date: 20141212
  Serious: Yes (Hospitalization, Other)
  Sender: FDA-Public Use
  Company Number: ZA-SA-200817573GDDC

PATIENT
  Sex: Female
  Weight: 36.5 kg

DRUGS (8)
  1. RIFAMPICIN [Suspect]
     Indication: PULMONARY TUBERCULOSIS
     Route: 065
     Dates: start: 20080620, end: 20080912
  2. ISONIAZID [Suspect]
     Indication: PULMONARY TUBERCULOSIS
     Route: 065
     Dates: start: 20080620, end: 20080912
  3. PYRAZINAMIDE [Suspect]
     Indication: PULMONARY TUBERCULOSIS
     Route: 065
     Dates: start: 20080620, end: 20080912
  4. ETHAMBUTOL [Suspect]
     Indication: PULMONARY TUBERCULOSIS
     Route: 065
     Dates: start: 20080620, end: 20080912
  5. PLACEBO [Suspect]
     Indication: PULMONARY TUBERCULOSIS
     Route: 065
     Dates: start: 20080620, end: 20080912
  6. PANADOL [Concomitant]
     Route: 048
     Dates: start: 20080619
  7. VITAMIN B COMPLEX [Concomitant]
     Dosage: DOSE AS USED: 2 TBL
     Route: 048
     Dates: start: 20080619
  8. FERROUS SULFATE [Concomitant]
     Dosage: DOSE AS USED: 2 TBL
     Route: 048
     Dates: start: 20080620

REACTIONS (6)
  - Deep vein thrombosis [Recovered/Resolved]
  - Oedema peripheral [Recovered/Resolved]
  - Pain in extremity [Recovered/Resolved]
  - Hepatotoxicity [Recovered/Resolved]
  - Pregnancy [Unknown]
  - Abortion spontaneous [Unknown]
